FAERS Safety Report 5218581-7 (Version None)
Quarter: 2007Q1

REPORT INFORMATION
  Report Type: 
  Country: None (occurrence: None)
  Receive Date: 20061130
  Receipt Date: 20060901
  Transmission Date: 20070707
  Serious: Yes (Other)
  Sender: FDA-Public Use
  Company Number: US200606000649

PATIENT
  Sex: Female
  Weight: 72.6 kg

DRUGS (3)
  1. ZYPREXA [Suspect]
     Dosage: SEE IMAGE
     Dates: start: 19980101
  2. ZYPREXA [Suspect]
     Dosage: SEE IMAGE
     Dates: start: 19980101
  3. CHLORPROMAZINE [Concomitant]

REACTIONS (3)
  - DIABETES MELLITUS [None]
  - HYPERGLYCAEMIA [None]
  - PANCREATITIS [None]
